FAERS Safety Report 5402564-8 (Version None)
Quarter: 2007Q3

REPORT INFORMATION
  Report Type: 
  Country: None (occurrence: None)
  Receive Date: 20070801
  Receipt Date: 20061214
  Transmission Date: 20080115
  Serious: No
  Sender: FDA-Public Use
  Company Number: A0631618A

PATIENT
  Sex: Female

DRUGS (4)
  1. IMITREX [Suspect]
     Indication: MIGRAINE
     Dosage: 100MG AS REQUIRED
     Route: 048
     Dates: start: 19920101
  2. IMITREX [Suspect]
     Route: 058
  3. MAGNESIUM SULFATE [Concomitant]
  4. BIRTH CONTROL PILLS [Concomitant]

REACTIONS (2)
  - DRUG INEFFECTIVE [None]
  - FEELING HOT [None]
